FAERS Safety Report 5124251-6 (Version None)
Quarter: 2006Q4

REPORT INFORMATION
  Report Type: 
  Country: None (occurrence: None)
  Receive Date: 20061010
  Receipt Date: 20061004
  Transmission Date: 20070319
  Serious: Yes (Hospitalization, Other)
  Sender: FDA-Public Use
  Company Number: US-PURDUE-USA_2006_0025330

PATIENT
  Age: 61 Year
  Sex: Female

DRUGS (7)
  1. OXYCONTIN [Suspect]
     Indication: BACK PAIN
     Dosage: 40 MG, UNK
  2. METFORMIN HCL [Concomitant]
     Indication: DIABETES MELLITUS
  3. METOPROLOL TARTRATE [Concomitant]
     Indication: HYPERTENSION
     Dosage: 100 MG, BID
  4. WELLBUTRIN [Concomitant]
     Indication: DEPRESSION
  5. NEURONTIN [Concomitant]
     Indication: NEUROPATHY PERIPHERAL
     Dosage: 400 MG, QID
  6. ACCUPRIL [Concomitant]
     Indication: HYPERTENSION
     Dosage: 40 MG, DAILY
  7. LASIX [Concomitant]
     Indication: OEDEMA
     Dosage: 40 MG, DAILY

REACTIONS (1)
  - DIABETIC FOOT [None]
